FAERS Safety Report 8990385 (Version 4)
Quarter: 2013Q3

REPORT INFORMATION
  Report Type: Spontaneous
  Country: SI (occurrence: SI)
  Receive Date: 20121228
  Receipt Date: 20130722
  Transmission Date: 20140515
  Serious: Yes (Disabling, Other)
  Sender: FDA-Public Use
  Company Number: SI-GENZYME-CERZ-1002718

PATIENT
  Age: 53 Year
  Sex: Female
  Weight: 75 kg

DRUGS (4)
  1. CEREZYME [Suspect]
     Indication: GAUCHER^S DISEASE
     Dosage: 30 U/KG, Q2W
     Route: 042
     Dates: start: 20030217, end: 20121127
  2. ALENDRONATE SODIUM [Concomitant]
     Indication: OSTEOPENIA
     Dosage: 70 MG, UNK
     Route: 065
  3. PERINDOPRIL [Concomitant]
     Indication: HYPERTENSION
     Dosage: 2 MG, QD
     Route: 065
  4. INDAPAMID [Concomitant]
     Indication: HYPERTENSION
     Dosage: 0.625 MG, QD
     Route: 065

REACTIONS (4)
  - Myalgia [Recovered/Resolved]
  - Arthralgia [Recovered/Resolved]
  - Pyrexia [Recovered/Resolved]
  - Chills [Recovered/Resolved]
